FAERS Safety Report 23714763 (Version 3)
Quarter: 2024Q2

REPORT INFORMATION
  Report Type: Report from Study
  Country: US (occurrence: US)
  Receive Date: 20240406
  Receipt Date: 20240412
  Transmission Date: 20240716
  Serious: Yes (Hospitalization)
  Sender: FDA-Public Use
  Company Number: US-SA-SAC20240229000766

PATIENT
  Age: 6 Month
  Sex: Female

DRUGS (1)
  1. IMIGLUCERASE [Suspect]
     Active Substance: IMIGLUCERASE
     Indication: Gaucher^s disease type II
     Dosage: 400 MG, QOW
     Route: 042
     Dates: start: 20240312

REACTIONS (3)
  - Hypopnoea [Not Recovered/Not Resolved]
  - Rhinovirus infection [Recovering/Resolving]
  - Off label use [Unknown]

NARRATIVE: CASE EVENT DATE: 20240101
